FAERS Safety Report 5930976-2 (Version None)
Quarter: 2008Q4

REPORT INFORMATION
  Report Type: 
  Country: None (occurrence: None)
  Receive Date: 20081022
  Receipt Date: 20081014
  Transmission Date: 20090506
  Serious: Yes (Hospitalization)
  Sender: FDA-Public Use
  Company Number: ADE2008-0344

PATIENT
  Age: 57 Year
  Sex: Male
  Weight: 76 kg

DRUGS (2)
  1. SIMVASTATIN [Suspect]
     Indication: HYPERCHOLESTEROLAEMIA
     Dosage: 40MG - DAILY - PO
     Route: 048
     Dates: start: 20070924
  2. RAMIPIRIL [Concomitant]

REACTIONS (3)
  - ILIAC ARTERY THROMBOSIS [None]
  - MUSCULOSKELETAL CHEST PAIN [None]
  - SPLENIC CALCIFICATION [None]
